FAERS Safety Report 14155981 (Version 2)
Quarter: 2018Q2

REPORT INFORMATION
  Report Type: Spontaneous
  Country: FR (occurrence: FR)
  Receive Date: 20171103
  Receipt Date: 20180528
  Transmission Date: 20180711
  Serious: Yes (Other)
  Sender: FDA-Public Use
  Company Number: FR-MERCK KGAA-2033134

PATIENT
  Age: 62 Year
  Sex: Female

DRUGS (1)
  1. NOVOTHYROX [Suspect]
     Active Substance: LEVOTHYROXINE SODIUM
     Indication: HYPOTHYROIDISM
     Route: 048
     Dates: start: 20170604, end: 20170914

REACTIONS (28)
  - Asthenia [Recovered/Resolved]
  - C-reactive protein increased [None]
  - Vomiting [None]
  - Diarrhoea [Recovered/Resolved]
  - Skin disorder [Not Recovered/Not Resolved]
  - Sluggishness [None]
  - Eating disorder [None]
  - Abdominal pain [Recovered/Resolved]
  - Blood thyroid stimulating hormone increased [Not Recovered/Not Resolved]
  - Loss of libido [None]
  - Abdominal pain upper [Recovered/Resolved]
  - Back pain [None]
  - Anxiety [None]
  - Headache [Recovered/Resolved]
  - Personal relationship issue [None]
  - Gastrointestinal disorder [Not Recovered/Not Resolved]
  - Apathy [None]
  - Mood swings [Recovered/Resolved]
  - Self esteem decreased [None]
  - Tri-iodothyronine free decreased [None]
  - Fatigue [Not Recovered/Not Resolved]
  - Dyspepsia [None]
  - Affect lability [Recovered/Resolved]
  - Decreased activity [Recovered/Resolved]
  - Mobility decreased [None]
  - Thyroxine free increased [None]
  - Arrhythmia [Not Recovered/Not Resolved]
  - Decreased interest [None]

NARRATIVE: CASE EVENT DATE: 2017
